FAERS Safety Report 8869313 (Version 1)
Quarter: 2012Q4

REPORT INFORMATION
  Report Type: Spontaneous
  Country: US (occurrence: None)
  Receive Date: 20121025
  Receipt Date: 20121025
  Transmission Date: 20130627
  Serious: Yes (Life-Threatening, Hospitalization)
  Sender: FDA-Public Use
  Company Number: None

PATIENT
  Age: 4 Year
  Sex: Male
  Weight: 17 kg

DRUGS (1)
  1. A MULSION [Suspect]
     Dosage: 3-6 drops qd po
     Route: 048
     Dates: start: 20120701, end: 20121002

REACTIONS (1)
  - Toxicity to various agents [None]
